FAERS Safety Report 8493100-0 (Version None)
Quarter: 2012Q3

REPORT INFORMATION
  Report Type: 
  Country: None (occurrence: None)
  Receive Date: 20120706
  Receipt Date: 20120629
  Transmission Date: 20120928
  Serious: Yes (Hospitalization)
  Sender: FDA-Public Use
  Company Number: US-ACTELION-A-US2012-65565

PATIENT

DRUGS (5)
  1. ADCIRCA [Concomitant]
  2. TRACLEER [Suspect]
     Indication: PULMONARY ARTERIAL HYPERTENSION
     Dosage: UNK
     Route: 048
     Dates: start: 20090123
  3. COUMADIN [Concomitant]
  4. REVATIO [Concomitant]
  5. CALCIUM CHANNEL BLOCKERS [Concomitant]

REACTIONS (3)
  - RESPIRATORY ARREST [None]
  - PULMONARY ARTERIAL HYPERTENSION [None]
  - RESPIRATORY FAILURE [None]
